FAERS Safety Report 5806029-0 (Version None)
Quarter: 2008Q3

REPORT INFORMATION
  Report Type: 
  Country: None (occurrence: None)
  Receive Date: 20080710
  Receipt Date: 20080701
  Transmission Date: 20090109
  Serious: Yes (Other)
  Sender: FDA-Public Use
  Company Number: GB-ASTRAZENECA-2008GB01293

PATIENT
  Sex: Female

DRUGS (6)
  1. OMEPRAZOLE [Suspect]
     Indication: ILL-DEFINED DISORDER
     Route: 048
     Dates: end: 20080601
  2. PAROXETINE HCL [Suspect]
     Indication: DEPRESSION
     Dosage: 20 MG
     Route: 065
     Dates: start: 20070101
  3. ARIPIPRAZOLE [Suspect]
     Route: 065
     Dates: start: 20080601, end: 20080601
  4. CLOZAPINE [Suspect]
     Indication: SCHIZOPHRENIA
     Dosage: HAD BEEN TAKEN FOR MANY YEARS
     Route: 065
  5. CLOZAPINE [Suspect]
     Dosage: REDUCED DOSE
     Route: 065
     Dates: end: 20080601
  6. VALPROIC ACID [Concomitant]
     Indication: AFFECTIVE DISORDER

REACTIONS (3)
  - NEUTROPENIA [None]
  - SALIVARY HYPERSECRETION [None]
  - SOMNOLENCE [None]
